FAERS Safety Report 25879721 (Version 1)
Quarter: 2025Q4

REPORT INFORMATION
  Report Type: Spontaneous
  Country: US (occurrence: US)
  Receive Date: 20251003
  Receipt Date: 20251003
  Transmission Date: 20260118
  Serious: No
  Sender: NOVARTIS
  Company Number: US-002147023-NVSC2025US150713

PATIENT
  Sex: Female

DRUGS (1)
  1. LEQVIO [Suspect]
     Active Substance: INCLISIRAN SODIUM
     Indication: Low density lipoprotein
     Dosage: 284 MG, (OTHER, 1 INJECTION 284MG/1.5ML, SOLUTION FOR INJECTION, DAY 1, DAY 90 AND THEN EVERY 6 MOS)
     Route: 058
     Dates: start: 20250915, end: 20250915

REACTIONS (1)
  - Joint swelling [Recovered/Resolved]

NARRATIVE: CASE EVENT DATE: 20250915
